FAERS Safety Report 24133574 (Version 2)
Quarter: 2024Q3

REPORT INFORMATION
  Report Type: Spontaneous
  Country: IT (occurrence: IT)
  Receive Date: 20240724
  Receipt Date: 20240814
  Transmission Date: 20241017
  Serious: Yes (Life-Threatening, Hospitalization, Other)
  Sender: BRISTOL MYERS SQUIBB
  Company Number: None

PATIENT
  Age: 82 Year
  Sex: Male

DRUGS (1)
  1. ELIQUIS [Suspect]
     Active Substance: APIXABAN
     Indication: Atrial fibrillation
     Route: 048
     Dates: start: 201909, end: 20240401

REACTIONS (7)
  - Hypoperfusion [Recovered/Resolved]
  - Tachycardia [Recovered/Resolved]
  - Blood loss anaemia [Recovered/Resolved]
  - Hypotension [Recovered/Resolved]
  - Shock haemorrhagic [Recovered/Resolved]
  - Presyncope [Recovered/Resolved]
  - Rectal haemorrhage [Recovered/Resolved]

NARRATIVE: CASE EVENT DATE: 20240330
